FAERS Safety Report 12239191 (Version 1)
Quarter: 2016Q2

REPORT INFORMATION
  Report Type: Spontaneous
  Country: CN (occurrence: CN)
  Receive Date: 20160405
  Receipt Date: 20160405
  Transmission Date: 20160815
  Serious: Yes (Other)
  Sender: FDA-Public Use
  Company Number: CN-BAXTER-2016BAX016810

PATIENT
  Age: 36 Year
  Sex: Female
  Weight: 67 kg

DRUGS (20)
  1. 0.9% SODIUM CHLORIDE INJECTION [Suspect]
     Active Substance: SODIUM CHLORIDE
     Dosage: SOLVENT FOR XINSHUNER
     Route: 041
     Dates: start: 20150907, end: 20150907
  2. LOSEC [Suspect]
     Active Substance: OMEPRAZOLE
     Indication: BREAST CANCER IN SITU
     Dosage: DOSE RE-INTRODUCED
     Route: 041
  3. XINSHUNER [Suspect]
     Active Substance: TROPISETRON HYDROCHLORIDE
     Indication: BREAST CANCER RECURRENT
     Route: 041
     Dates: start: 20150907, end: 20150907
  4. 0.9% SODIUM CHLORIDE INJECTION [Suspect]
     Active Substance: SODIUM CHLORIDE
     Dosage: SOLVENT FOR FLOXURIDINE
     Route: 041
     Dates: start: 20150907, end: 20150907
  5. 0.9% SODIUM CHLORIDE INJECTION [Suspect]
     Active Substance: SODIUM CHLORIDE
     Dosage: SOLVENT FOR XINSHUNER
     Route: 041
  6. FLOXURIDINE. [Suspect]
     Active Substance: FLOXURIDINE
     Indication: BREAST CANCER IN SITU
     Dosage: DOSE RE-INTRODUCED
     Route: 041
  7. 0.9% SODIUM CHLORIDE INJECTION [Suspect]
     Active Substance: SODIUM CHLORIDE
     Dosage: SOLVENT FOR LOSEC
     Route: 041
     Dates: start: 20150907, end: 20150907
  8. 0.9% SODIUM CHLORIDE INJECTION [Suspect]
     Active Substance: SODIUM CHLORIDE
     Dosage: SOLVENT FOR LOSEC
     Route: 041
  9. CYCLOPHOSPHAMIDE. [Suspect]
     Active Substance: CYCLOPHOSPHAMIDE
     Indication: BREAST CANCER IN SITU
     Dosage: DOSE RE-INTRODUCED
     Route: 041
  10. PHARMORUBICIN [Suspect]
     Active Substance: EPIRUBICIN
     Indication: BREAST CANCER IN SITU
     Dosage: DOSE RE-INTRODUCED
     Route: 041
  11. 0.9% SODIUM CHLORIDE INJECTION [Suspect]
     Active Substance: SODIUM CHLORIDE
     Indication: MEDICATION DILUTION
     Dosage: SOLVENT FOR CYCLOPHOSPHAMIDE
     Route: 041
     Dates: start: 20150907, end: 20150907
  12. 0.9% SODIUM CHLORIDE INJECTION [Suspect]
     Active Substance: SODIUM CHLORIDE
     Dosage: SOLVENT FOR CYCLOPHOSPHAMIDE
     Route: 041
  13. 0.9% SODIUM CHLORIDE INJECTION [Suspect]
     Active Substance: SODIUM CHLORIDE
     Dosage: SOLVENT FOR PHARMORUBICIN
     Route: 041
  14. CYCLOPHOSPHAMIDE. [Suspect]
     Active Substance: CYCLOPHOSPHAMIDE
     Indication: BREAST CANCER RECURRENT
     Route: 041
     Dates: start: 20150907, end: 20150907
  15. FLOXURIDINE. [Suspect]
     Active Substance: FLOXURIDINE
     Indication: BREAST CANCER RECURRENT
     Route: 041
     Dates: start: 20150907, end: 20150907
  16. LOSEC [Suspect]
     Active Substance: OMEPRAZOLE
     Indication: BREAST CANCER RECURRENT
     Route: 041
     Dates: start: 20150907, end: 20150907
  17. XINSHUNER [Suspect]
     Active Substance: TROPISETRON HYDROCHLORIDE
     Indication: BREAST CANCER IN SITU
     Dosage: DOSE RE-INTRODUCED
     Route: 041
  18. 0.9% SODIUM CHLORIDE INJECTION [Suspect]
     Active Substance: SODIUM CHLORIDE
     Dosage: SOLVENT FOR PHARMORUBICIN
     Route: 041
     Dates: start: 20150907, end: 20150907
  19. 0.9% SODIUM CHLORIDE INJECTION [Suspect]
     Active Substance: SODIUM CHLORIDE
     Dosage: SOLVENT FOR FLOXURIDINE
     Route: 041
  20. PHARMORUBICIN [Suspect]
     Active Substance: EPIRUBICIN
     Indication: BREAST CANCER RECURRENT
     Route: 041
     Dates: start: 20150907, end: 20150907

REACTIONS (1)
  - Bone marrow failure [Recovering/Resolving]

NARRATIVE: CASE EVENT DATE: 20150914
